FAERS Safety Report 5509527-2 (Version None)
Quarter: 2007Q4

REPORT INFORMATION
  Report Type: 
  Country: None (occurrence: None)
  Receive Date: 20071029
  Receipt Date: 20070822
  Transmission Date: 20080405
  Serious: No
  Sender: FDA-Public Use
  Company Number: 013110

PATIENT
  Age: 41 Year
  Sex: Male

DRUGS (3)
  1. PRIALT [Suspect]
     Indication: COMPLEX REGIONAL PAIN SYNDROME
     Dosage: 5 UG, SINGLE, INTRATHECAL; 0.20 UG, ONCE/HOUR, INTRATHECAL
     Route: 037
     Dates: start: 20070801, end: 20070801
  2. PRIALT [Suspect]
     Indication: COMPLEX REGIONAL PAIN SYNDROME
     Dosage: 5 UG, SINGLE, INTRATHECAL; 0.20 UG, ONCE/HOUR, INTRATHECAL
     Route: 037
     Dates: start: 20070801
  3. PERCOCET [Concomitant]

REACTIONS (7)
  - BRADYPHRENIA [None]
  - DIZZINESS [None]
  - GAIT DEVIATION [None]
  - NYSTAGMUS [None]
  - PAIN [None]
  - PARAESTHESIA [None]
  - TINNITUS [None]
